FAERS Safety Report 25595654 (Version 1)
Quarter: 2025Q3

REPORT INFORMATION
  Report Type: Spontaneous
  Country: US (occurrence: US)
  Receive Date: 20250723
  Receipt Date: 20250723
  Transmission Date: 20251020
  Serious: No
  Sender: Kenvue
  Company Number: US-KENVUE-20250702105

PATIENT
  Age: 82 Year
  Sex: Female

DRUGS (1)
  1. WOMENS ROGAINE UNSCENTED [Suspect]
     Active Substance: MINOXIDIL
     Indication: Alopecia
     Dosage: HALF CAPFUL ONCE DAILY
     Route: 061
     Dates: start: 20250630, end: 20250702

REACTIONS (5)
  - Application site erythema [Recovering/Resolving]
  - Application site papules [Recovering/Resolving]
  - Application site pruritus [Recovering/Resolving]
  - Application site discomfort [Recovering/Resolving]
  - Eye swelling [Recovering/Resolving]

NARRATIVE: CASE EVENT DATE: 20250702
